FAERS Safety Report 5039627-5 (Version None)
Quarter: 2006Q2

REPORT INFORMATION
  Report Type: 
  Country: None (occurrence: None)
  Receive Date: 20060601
  Receipt Date: 20060120
  Transmission Date: 20061013
  Serious: No
  Sender: FDA-Public Use
  Company Number: 2006PV007392

PATIENT
  Age: 72 Year
  Sex: Female

DRUGS (3)
  1. BYETTA [Suspect]
     Indication: DIABETES MELLITUS NON-INSULIN-DEPENDENT
     Dosage: 5 MCG; BID; SC
     Route: 058
     Dates: start: 20060113, end: 20060117
  2. GLUCOPHAGE XR [Concomitant]
  3. ALVARIDE [Concomitant]

REACTIONS (3)
  - DIZZINESS [None]
  - DYSPEPSIA [None]
  - INSOMNIA [None]
